FAERS Safety Report 5074193-X (Version None)
Quarter: 2006Q3

REPORT INFORMATION
  Report Type: 
  Country: None (occurrence: None)
  Receive Date: 20060808
  Receipt Date: 20060804
  Transmission Date: 20061208
  Serious: Yes (Death, Hospitalization)
  Sender: FDA-Public Use
  Company Number: AR-BRISTOL-MYERS SQUIBB COMPANY-13466974

PATIENT
  Age: 74 Year
  Sex: Male
  Weight: 72 kg

DRUGS (6)
  1. CISPLATIN [Suspect]
     Indication: NON-SMALL CELL LUNG CANCER
     Route: 042
     Dates: start: 20060317
  2. ETOPOSIDE [Suspect]
     Indication: NON-SMALL CELL LUNG CANCER
     Route: 042
     Dates: start: 20060417
  3. RADIATION THERAPY [Suspect]
     Indication: NON-SMALL CELL LUNG CANCER
     Dates: start: 20060417
  4. ENALAPRIL MALEATE [Concomitant]
     Indication: HYPERTENSION
  5. PROPOXYPHENE HYDROCHLORIDE [Concomitant]
     Indication: PAIN
     Dates: start: 20060424, end: 20060519
  6. DIPYRONE INJ [Concomitant]
     Indication: PAIN
     Dates: start: 20060324, end: 20060519

REACTIONS (3)
  - PNEUMONIA [None]
  - RESPIRATORY FAILURE [None]
  - RESPIRATORY TRACT INFECTION [None]
